FAERS Safety Report 8317496 (Version 2)
Quarter: 2012Q4

REPORT INFORMATION
  Report Type: 
  Country: TN (occurrence: TN)
  Receive Date: 20111231
  Receipt Date: 20121207
  Transmission Date: 20130627
  Serious: Yes (Other)
  Sender: FDA-Public Use
  Company Number: TN-ACCORD-011832

PATIENT
  Age: 38 Year

DRUGS (4)
  1. TACROLIMUS [Suspect]
     Indication: RENAL TRANSPLANT
  2. PREDNISONE [Concomitant]
     Indication: RENAL TRANSPLANT
  3. THEOPHYLLIN [Interacting]
     Indication: POLYCYTHEMIA
     Route: 065
     Dates: start: 20090617
  4. MYCOPHENOLIC ACID [Concomitant]
     Indication: RENAL TRANSPLANT

REACTIONS (3)
  - Drug interaction [Unknown]
  - Drug level increased [Recovering/Resolving]
  - Renal impairment [Recovering/Resolving]
